FAERS Safety Report 12780332 (Version 1)
Quarter: 2016Q3

REPORT INFORMATION
  Report Type: Spontaneous
  Country: US (occurrence: US)
  Receive Date: 20160926
  Receipt Date: 20160926
  Transmission Date: 20161109
  Serious: Yes (Death, Other)
  Sender: FDA-Public Use
  Company Number: US-PFIZER INC-2016438432

PATIENT
  Age: 67 Year
  Sex: Male

DRUGS (1)
  1. SUTENT [Suspect]
     Active Substance: SUNITINIB MALATE
     Dosage: 50 MG, CYCLIC (ONE CAPSULE ONE TIME DAILY FOR 14 DYAS THEN OFF 7 DAYS)
     Route: 048
     Dates: start: 20160321, end: 20160826

REACTIONS (1)
  - Death [Fatal]

NARRATIVE: CASE EVENT DATE: 20160826
